FAERS Safety Report 13419426 (Version 3)
Quarter: 2017Q4

REPORT INFORMATION
  Report Type: Spontaneous
  Country: US (occurrence: US)
  Receive Date: 20170407
  Receipt Date: 20171018
  Transmission Date: 20180320
  Serious: No
  Sender: FDA-Public Use
  Company Number: US-AMGEN-USASP2017052514

PATIENT
  Age: 80 Year
  Sex: Male

DRUGS (2)
  1. PROLIA [Suspect]
     Active Substance: DENOSUMAB
     Indication: OSTEOPOROSIS
     Dosage: UNK
     Route: 065
     Dates: start: 201602
  2. ENBREL [Suspect]
     Active Substance: ETANERCEPT
     Indication: RHEUMATOID ARTHRITIS
     Dosage: 50 MG, UNK
     Route: 065

REACTIONS (21)
  - Night sweats [Unknown]
  - Infection [Unknown]
  - Decreased immune responsiveness [Unknown]
  - Skin exfoliation [Unknown]
  - Hypoacusis [Not Recovered/Not Resolved]
  - Insomnia [Unknown]
  - Hepatic enzyme increased [Unknown]
  - Rash macular [Unknown]
  - Swelling [Unknown]
  - Blister [Unknown]
  - Pruritus [Recovering/Resolving]
  - Abdominal pain upper [Unknown]
  - Dry skin [Unknown]
  - Bowel movement irregularity [Unknown]
  - Dysstasia [Unknown]
  - Rash [Unknown]
  - Constipation [Unknown]
  - Diarrhoea [Unknown]
  - Pyrexia [Unknown]
  - Chills [Unknown]
  - Cough [Unknown]

NARRATIVE: CASE EVENT DATE: 2012
